FAERS Safety Report 12215204 (Version 1)
Quarter: 2016Q1

REPORT INFORMATION
  Report Type: Spontaneous
  Country: None (occurrence: SE)
  Receive Date: 20160328
  Receipt Date: 20160328
  Transmission Date: 20160526
  Serious: Yes (Hospitalization)
  Sender: FDA-Public Use
  Company Number: SE-POPULATION COUNCIL, INC.-1049829

PATIENT
  Age: 32 Year
  Sex: Female

DRUGS (1)
  1. JADELLE [Suspect]
     Active Substance: LEVONORGESTREL
     Indication: CONTRACEPTION
     Route: 059
     Dates: start: 20080403

REACTIONS (1)
  - Intracranial venous sinus thrombosis [None]

NARRATIVE: CASE EVENT DATE: 20100201
